FAERS Safety Report 16259742 (Version 1)
Quarter: 2019Q2

REPORT INFORMATION
  Report Type: Spontaneous
  Country: US (occurrence: US)
  Receive Date: 20190327
  Receipt Date: 20190327
  Transmission Date: 20190711
  Serious: No
  Sender: FDA-Public Use
  Company Number: None

PATIENT
  Age: 61 Year
  Sex: Female
  Weight: 102.97 kg

DRUGS (1)
  1. AIMOVIG [Suspect]
     Active Substance: ERENUMAB-AOOE
     Indication: MIGRAINE
     Dosage: ?          OTHER FREQUENCY:Q 28 DAYS;?
     Route: 058
     Dates: start: 20181115, end: 201902

REACTIONS (4)
  - Amnesia [None]
  - Headache [None]
  - Disturbance in attention [None]
  - Loss of personal independence in daily activities [None]
